FAERS Safety Report 4709098-4 (Version None)
Quarter: 2005Q3

REPORT INFORMATION
  Report Type: 
  Country: None (occurrence: None)
  Receive Date: 20050707
  Receipt Date: 20050707
  Transmission Date: 20060218
  Serious: No
  Sender: FDA-Public Use
  Company Number: None

PATIENT
  Age: 63 Year
  Sex: Male
  Weight: 78 kg

DRUGS (4)
  1. VANCOMYCIN [Suspect]
     Indication: PROTEUS INFECTION
     Dosage: 1 GRAM EVERY 36 HOURS INTRAVENOUS
     Route: 042
     Dates: start: 20050602, end: 20050620
  2. VANCOMYCIN [Suspect]
     Indication: WOUND INFECTION
     Dosage: 1 GRAM EVERY 36 HOURS INTRAVENOUS
     Route: 042
     Dates: start: 20050602, end: 20050620
  3. CEFEPIME 2 GRAMS [Suspect]
     Indication: PROTEUS INFECTION
     Dosage: 2 GRAMS EVERY 24 HOURS INTRAVENOUS
     Route: 042
     Dates: start: 20050602, end: 20050620
  4. CEFEPIME 2 GRAMS [Suspect]
     Indication: WOUND INFECTION
     Dosage: 2 GRAMS EVERY 24 HOURS INTRAVENOUS
     Route: 042
     Dates: start: 20050602, end: 20050620

REACTIONS (1)
  - NEPHRITIS INTERSTITIAL [None]
